FAERS Safety Report 6885538-X (Version None)
Quarter: 2010Q3

REPORT INFORMATION
  Report Type: 
  Country: None (occurrence: None)
  Receive Date: 20100729
  Receipt Date: 20080629
  Transmission Date: 20110219
  Serious: Yes (Other)
  Sender: FDA-Public Use
  Company Number: US-PFIZER INC-2008054455

PATIENT
  Sex: Male
  Weight: 75 kg

DRUGS (6)
  1. CELEBREX [Suspect]
     Indication: ARTHRITIS
     Dates: start: 20060201, end: 20060701
  2. CELEBREX [Suspect]
     Indication: JOINT SWELLING
  3. CELEBREX [Suspect]
     Indication: ARTHRALGIA
  4. SOMA [Concomitant]
  5. REGLAN [Concomitant]
  6. DRUG, UNSPECIFIED [Concomitant]

REACTIONS (1)
  - CEREBROVASCULAR ACCIDENT [None]
